FAERS Safety Report 6574236-8 (Version None)
Quarter: 2010Q1

REPORT INFORMATION
  Report Type: 
  Country: None (occurrence: None)
  Receive Date: 20100208
  Receipt Date: 20100201
  Transmission Date: 20100710
  Serious: Yes (Hospitalization, Other)
  Sender: FDA-Public Use
  Company Number: US-RB-027381-10

PATIENT
  Age: 53 Year
  Sex: Male

DRUGS (4)
  1. SUBOXONE [Suspect]
     Route: 060
     Dates: start: 20090101, end: 20100101
  2. SUBOXONE [Suspect]
     Route: 060
     Dates: end: 20100118
  3. WELLBUTRIN [Suspect]
     Indication: DRUG USE FOR UNKNOWN INDICATION
     Dosage: DOSING INFORMATION UNKNOWN
     Route: 065
     Dates: end: 20100131
  4. OXAZEPAM [Suspect]
     Indication: DRUG USE FOR UNKNOWN INDICATION
     Dosage: DOSING DETAILS UNKNOWN
     Route: 065

REACTIONS (7)
  - BRONCHITIS [None]
  - CONVULSION [None]
  - DRUG WITHDRAWAL SYNDROME [None]
  - EMPHYSEMA [None]
  - GRAND MAL CONVULSION [None]
  - INSOMNIA [None]
  - OVERDOSE [None]
